FAERS Safety Report 6370257-9 (Version None)
Quarter: 2009Q3

REPORT INFORMATION
  Report Type: 
  Country: None (occurrence: None)
  Receive Date: 20090923
  Receipt Date: 20090910
  Transmission Date: 20100115
  Serious: Yes (Other)
  Sender: FDA-Public Use
  Company Number: US-PFIZER INC-2009247177

PATIENT

DRUGS (1)
  1. AROMASIN [Suspect]
     Indication: ADJUVANT THERAPY
     Dosage: UNK

REACTIONS (1)
  - CEREBELLAR ATAXIA [None]
